FAERS Safety Report 25886609 (Version 1)
Quarter: 2025Q4

REPORT INFORMATION
  Report Type: Spontaneous
  Country: EU (occurrence: EU)
  Receive Date: 20251006
  Receipt Date: 20251006
  Transmission Date: 20260117
  Serious: Yes (Hospitalization)
  Sender: MYLAN
  Company Number: None

PATIENT
  Age: 17 Year
  Sex: Male
  Weight: 50 kg

DRUGS (2)
  1. XANAX [Suspect]
     Active Substance: ALPRAZOLAM
     Indication: Panic attack
     Dosage: 1MG,PRN(1 TABLET WAS TAKEN AS NEEDED WITH EPISODES OF VOLUNTARY ABUSE, NOT FOR CONSERVATIVE PURPOSE
     Dates: start: 20240401, end: 20250501
  2. SERTRALINE [Concomitant]
     Active Substance: SERTRALINE HYDROCHLORIDE
     Dosage: 170 MILLIGRAM, QD (170 MG/DAY)

REACTIONS (2)
  - Kleptomania [Recovered/Resolved]
  - Impulse-control disorder [Recovered/Resolved]

NARRATIVE: CASE EVENT DATE: 20241201
